FAERS Safety Report 6761236-8 (Version None)
Quarter: 2010Q2

REPORT INFORMATION
  Report Type: 
  Country: None (occurrence: None)
  Receive Date: 20100608
  Receipt Date: 20100527
  Transmission Date: 20101027
  Serious: Yes (Hospitalization, Other)
  Sender: FDA-Public Use
  Company Number: PHHY2010JP31509

PATIENT
  Age: 23 Year
  Sex: Male

DRUGS (8)
  1. NEORAL [Suspect]
     Indication: NEPHROTIC SYNDROME
     Dosage: 100 MG, DAILY
     Route: 048
     Dates: start: 20001201, end: 20100507
  2. VOLTAREN [Concomitant]
     Dosage: 50 MG, UNK
     Route: 048
     Dates: start: 20100411, end: 20100413
  3. PERSANTINE [Concomitant]
     Dosage: 100 MG, UNK
     Route: 048
     Dates: start: 20080201
  4. ALFAROL [Concomitant]
     Dosage: 0.5 MG, UNK
     Route: 048
     Dates: start: 20080201
  5. CEFAZOLIN SODIUM [Concomitant]
     Dosage: UNK
     Route: 041
  6. LOXONIN [Concomitant]
     Dosage: UNK
     Route: 048
     Dates: start: 20100410, end: 20100410
  7. CANDESARTAN CILEXETIL [Concomitant]
     Dosage: 4 MG, UNK
     Route: 048
     Dates: start: 20080201
  8. PENTAZOCINE LACTATE [Concomitant]

REACTIONS (3)
  - BLOOD CREATINE PHOSPHOKINASE INCREASED [None]
  - OSTEONECROSIS [None]
  - SURGERY [None]
